FAERS Safety Report 15088792 (Version 2)
Quarter: 2020Q2

REPORT INFORMATION
  Report Type: Spontaneous
  Country: US (occurrence: US)
  Receive Date: 20180629
  Receipt Date: 20200529
  Transmission Date: 20200713
  Serious: No
  Sender: FDA-Public Use
  Company Number: US-PFIZER INC-2017290636

PATIENT
  Age: 8 Year
  Sex: Male
  Weight: 27.21 kg

DRUGS (2)
  1. GENOTROPIN [Suspect]
     Active Substance: SOMATROPIN
     Indication: GROWTH HORMONE DEFICIENCY
     Dosage: 1.2 MG, 1X/DAY (EVERY NIGHT BEFORE BED)
     Dates: start: 201708
  2. GENOTROPIN [Suspect]
     Active Substance: SOMATROPIN
     Dosage: UNK
     Dates: start: 2018

REACTIONS (9)
  - Wrong technique in device usage process [Unknown]
  - Product dose omission [Unknown]
  - Fall [Unknown]
  - Pain [Unknown]
  - Poor quality device used [Unknown]
  - Arthralgia [Unknown]
  - Product prescribing error [Unknown]
  - Intentional product use issue [Unknown]
  - Device issue [Unknown]
